FAERS Safety Report 6550286-2 (Version None)
Quarter: 2010Q1

REPORT INFORMATION
  Report Type: 
  Country: None (occurrence: None)
  Receive Date: 20100125
  Receipt Date: 20100120
  Transmission Date: 20100710
  Serious: Yes (Death, Other)
  Sender: FDA-Public Use
  Company Number: GB-TEVA-181425ISR

PATIENT
  Sex: Female

DRUGS (1)
  1. CITALOPRAM [Suspect]
     Indication: DEPRESSION
     Route: 064
     Dates: start: 20080110

REACTIONS (1)
  - INTRA-UTERINE DEATH [None]
